FAERS Safety Report 17038051 (Version 3)
Quarter: 2020Q1

REPORT INFORMATION
  Report Type: Spontaneous
  Country: US (occurrence: US)
  Receive Date: 20191115
  Receipt Date: 20200117
  Transmission Date: 20200409
  Serious: Yes (Hospitalization, Other)
  Sender: FDA-Public Use
  Company Number: US-TRIS PHARMA, INC.-19US008609

PATIENT

DRUGS (3)
  1. IBUPROFEN. [Concomitant]
     Active Substance: IBUPROFEN
     Indication: PYREXIA
     Route: 065
  2. TYLENOL [Concomitant]
     Active Substance: ACETAMINOPHEN
     Indication: PYREXIA
     Route: 065
  3. IBUPROFEN. [Suspect]
     Active Substance: IBUPROFEN
     Indication: PYREXIA
     Dosage: 2-5 MILLILITER, PRN
     Route: 048
     Dates: start: 2018, end: 201812

REACTIONS (9)
  - Kidney small [Unknown]
  - Product use issue [Unknown]
  - Renal impairment [Unknown]
  - Dehydration [Recovered/Resolved]
  - Hydronephrosis [Unknown]
  - Pelvi-ureteric obstruction [Unknown]
  - Pneumonia [Recovered/Resolved]
  - Renal impairment [Unknown]
  - Respiratory syncytial virus infection [Recovered/Resolved]

NARRATIVE: CASE EVENT DATE: 2018
